FAERS Safety Report 23424887 (Version 1)
Quarter: 2024Q1

REPORT INFORMATION
  Report Type: Other
  Country: GB (occurrence: GB)
  Receive Date: 20240121
  Receipt Date: 20240121
  Transmission Date: 20240410
  Serious: Yes (Other)
  Sender: FDA-Public Use
  Company Number: None

PATIENT
  Age: 80 Year
  Sex: Male
  Weight: 75 kg

DRUGS (7)
  1. IBUPROFEN [Suspect]
     Active Substance: IBUPROFEN
     Indication: Ill-defined disorder
     Dosage: UNK
     Route: 065
     Dates: start: 20230919
  2. AMIODARONE [Concomitant]
     Active Substance: AMIODARONE
     Indication: Ill-defined disorder
     Dosage: QD, TAKE ONE DAILY
     Route: 065
     Dates: start: 20230912
  3. ASPIRIN [Concomitant]
     Active Substance: ASPIRIN
     Indication: Ill-defined disorder
     Dosage: QD, TAKE ONE DAILY
     Route: 065
     Dates: start: 20230912
  4. BISOPROLOL [Concomitant]
     Active Substance: BISOPROLOL\BISOPROLOL FUMARATE
     Indication: Ill-defined disorder
     Dosage: QD, TAKE ONE DAILY
     Route: 065
     Dates: start: 20230912
  5. NITROGLYCERIN [Concomitant]
     Active Substance: NITROGLYCERIN
     Indication: Ill-defined disorder
     Dosage: PRN, SPRAY ONE OR TWO DOSES UNDER TONGUE WHEN REQUIRED
     Route: 065
     Dates: start: 20230912
  6. SACUBITRIL [Concomitant]
     Active Substance: SACUBITRIL
     Indication: Ill-defined disorder
     Dosage: BID, ONE TO BE TAKEN TWICE A DAY
     Route: 065
     Dates: start: 20230912
  7. SPIRONOLACTONE [Concomitant]
     Active Substance: SPIRONOLACTONE
     Indication: Ill-defined disorder
     Dosage: EVERY MORNING, HALF A TABLET TO BE TAKEN EACH MORNING
     Route: 065
     Dates: start: 20230912

REACTIONS (2)
  - Lip swelling [Recovered/Resolved]
  - Dysphagia [Unknown]

NARRATIVE: CASE EVENT DATE: 20231222
